FAERS Safety Report 20163828 (Version 5)
Quarter: 2022Q1

REPORT INFORMATION
  Report Type: Spontaneous
  Country: JP (occurrence: JP)
  Receive Date: 20211209
  Receipt Date: 20220118
  Transmission Date: 20220423
  Serious: Yes (Hospitalization, Other)
  Sender: FDA-Public Use
  Company Number: JP-ASTELLAS-2021JP023596

PATIENT
  Age: 10 Decade
  Sex: Male

DRUGS (10)
  1. XTANDI [Suspect]
     Active Substance: ENZALUTAMIDE
     Indication: Hormone-refractory prostate cancer
     Route: 048
     Dates: start: 20191101, end: 201912
  2. XTANDI [Suspect]
     Active Substance: ENZALUTAMIDE
     Route: 048
     Dates: start: 202001, end: 20210531
  3. SENNOSIDES [Concomitant]
     Active Substance: SENNOSIDES
     Indication: Product used for unknown indication
     Dosage: UNK UNK, UNKNOWN FREQ.
     Route: 048
  4. Marzulene [Concomitant]
     Indication: Product used for unknown indication
     Dosage: UNK UNK, UNKNOWN FREQ.
     Route: 048
  5. LEUPLIN [Concomitant]
     Active Substance: LEUPROLIDE ACETATE
     Indication: Product used for unknown indication
     Dosage: UNK UNK, UNKNOWN FREQ.
     Route: 058
  6. LANSOPRAZOLE [Concomitant]
     Active Substance: LANSOPRAZOLE
     Indication: Product used for unknown indication
     Dosage: 15 MG/DAY, UNKNOWN FREQ.
     Route: 048
  7. ANAGLIPTIN [Concomitant]
     Active Substance: ANAGLIPTIN
     Indication: Product used for unknown indication
     Dosage: 200 MG/DAY, UNKNOWN FREQ.
     Route: 048
  8. TELTHIA COMBINATION AP DSEP [Concomitant]
     Indication: Product used for unknown indication
     Dosage: UNK UNK, UNKNOWN FREQ.
     Route: 048
  9. NAFTOPIDIL [Concomitant]
     Active Substance: NAFTOPIDIL
     Indication: Product used for unknown indication
     Dosage: 75 MG/DAY, UNKNOWN FREQ.
     Route: 048
  10. MIRABEGRON [Concomitant]
     Active Substance: MIRABEGRON
     Indication: Product used for unknown indication
     Dosage: 25 MG/DAY, UNKNOWN FREQ.
     Route: 048

REACTIONS (1)
  - Cerebral infarction [Recovering/Resolving]

NARRATIVE: CASE EVENT DATE: 20210601
